FAERS Safety Report 10432223 (Version 1)
Quarter: 2014Q3

REPORT INFORMATION
  Report Type: Spontaneous
  Country: CA (occurrence: None)
  Receive Date: 20140904
  Receipt Date: 20140904
  Transmission Date: 20150326
  Serious: No
  Sender: FDA-Public Use
  Company Number: None

PATIENT
  Age: 33 Year
  Sex: Female
  Weight: 72.58 kg

DRUGS (1)
  1. KWEDELLA-P LOTION [Suspect]
     Active Substance: PERMETHRIN
     Indication: LICE INFESTATION
     Dates: start: 20140803, end: 20140810

REACTIONS (4)
  - Paraesthesia [None]
  - Pruritus generalised [None]
  - Hypoaesthesia [None]
  - Formication [None]

NARRATIVE: CASE EVENT DATE: 20140803
